FAERS Safety Report 16802625 (Version 1)
Quarter: 2019Q3

REPORT INFORMATION
  Report Type: Spontaneous
  Country: US (occurrence: US)
  Receive Date: 20190912
  Receipt Date: 20190912
  Transmission Date: 20191005
  Serious: No
  Sender: FDA-Public Use
  Company Number: US-ELI_LILLY_AND_COMPANY-US201909006046

PATIENT
  Age: 35 Year
  Sex: Male

DRUGS (1)
  1. CYMBALTA [Suspect]
     Active Substance: DULOXETINE HYDROCHLORIDE
     Indication: NECK PAIN
     Dosage: 60 MG, UNKNOWN
     Route: 065

REACTIONS (3)
  - Restlessness [Recovered/Resolved]
  - Disorientation [Recovered/Resolved]
  - Somnolence [Recovered/Resolved]
